FAERS Safety Report 13397168 (Version 1)
Quarter: 2017Q2

REPORT INFORMATION
  Report Type: Spontaneous
  Country: JP (occurrence: JP)
  Receive Date: 20170403
  Receipt Date: 20170403
  Transmission Date: 20170830
  Serious: Yes (Death)
  Sender: FDA-Public Use
  Company Number: JP-MALLINCKRODT-T201504955

PATIENT
  Age: 58 Year
  Sex: Female
  Weight: 60 kg

DRUGS (26)
  1. METHADONE [Suspect]
     Active Substance: METHADONE HYDROCHLORIDE
     Dosage: (25 MG DAILY DOSE)
     Route: 048
     Dates: start: 20150603, end: 20150609
  2. PACLITAXEL. [Concomitant]
     Active Substance: PACLITAXEL
     Dosage: 150 MG
     Route: 051
     Dates: start: 20160519, end: 20160630
  3. METHADONE [Suspect]
     Active Substance: METHADONE HYDROCHLORIDE
     Dosage: 10 MG (30 MG DAILY DOSE)
     Route: 048
     Dates: start: 20150715, end: 20160317
  4. EPIRUBICIN HCL [Concomitant]
     Active Substance: EPIRUBICIN HYDROCHLORIDE
     Dosage: 48 MG
     Route: 051
     Dates: start: 20151225, end: 20160128
  5. HALAVEN [Concomitant]
     Active Substance: ERIBULIN MESYLATE
     Dosage: 2.1 MG
     Route: 051
     Dates: start: 20160212, end: 20160512
  6. METHADONE [Suspect]
     Active Substance: METHADONE HYDROCHLORIDE
     Dosage: 10 MG (30 MG DAILY DOSE)
     Route: 048
     Dates: start: 20150610, end: 20150630
  7. METHADONE [Suspect]
     Active Substance: METHADONE HYDROCHLORIDE
     Dosage: 20 MG (60 MG DAILY DOSE)
     Route: 048
     Dates: start: 20160318, end: 20160901
  8. METHADONE [Suspect]
     Active Substance: METHADONE HYDROCHLORIDE
     Dosage: 60 MG (180 MG DAILY DOSE)
     Route: 048
     Dates: start: 20161025, end: 20161106
  9. OXINORM [Concomitant]
     Active Substance: OXYCODONE HYDROCHLORIDE
     Indication: ANALGESIC THERAPY
     Dosage: 5-40 MG PRN
     Route: 048
     Dates: start: 20140319
  10. HERCEPTIN [Concomitant]
     Active Substance: TRASTUZUMAB
     Dosage: 480 MG
     Route: 051
     Dates: start: 20160714, end: 20160804
  11. TAXOTERE [Concomitant]
     Active Substance: DOCETAXEL
     Dosage: 100 MG
     Dates: start: 20150519, end: 20150630
  12. LAXOBERON [Concomitant]
     Active Substance: SODIUM PICOSULFATE
     Dosage: UNK
     Route: 048
     Dates: start: 20150930
  13. METHADONE [Suspect]
     Active Substance: METHADONE HYDROCHLORIDE
     Indication: CANCER PAIN
     Dosage: 10 MG (30 MG DAILY DOSE)
     Route: 048
     Dates: start: 20150520, end: 20150526
  14. METHADONE [Suspect]
     Active Substance: METHADONE HYDROCHLORIDE
     Dosage: 30 MG (90 MG DAILY DOSE)
     Route: 048
     Dates: start: 20160902, end: 20161010
  15. KADCYLA [Concomitant]
     Active Substance: ADO-TRASTUZUMAB EMTANSINE
     Dosage: 196 MG
     Route: 051
     Dates: start: 20150722, end: 20151209
  16. LECICARBON [Concomitant]
     Active Substance: SODIUM BICARBONATE\SODIUM PHOSPHATE, MONOBASIC
     Dosage: 1 DF
     Route: 054
     Dates: start: 20151021
  17. METHADONE [Suspect]
     Active Substance: METHADONE HYDROCHLORIDE
     Dosage: 80 MG (240 MG DAILY DOSE)
     Route: 048
     Dates: start: 20161107, end: 20161120
  18. HERCEPTIN [Concomitant]
     Active Substance: TRASTUZUMAB
     Dosage: 378 MG
     Route: 051
     Dates: start: 20150519, end: 20150630
  19. METHADONE [Suspect]
     Active Substance: METHADONE HYDROCHLORIDE
     Dosage: (20 MG DAILY DOSE)
     Route: 048
     Dates: start: 20150527, end: 20150602
  20. METHADONE [Suspect]
     Active Substance: METHADONE HYDROCHLORIDE
     Dosage: 60 MG (180 MG DAILY DOSE)
     Route: 048
     Dates: start: 20161121, end: 20161202
  21. CYMBALTA [Concomitant]
     Active Substance: DULOXETINE HYDROCHLORIDE
     Indication: ANALGESIC THERAPY
     Dosage: 40 MG
     Route: 048
     Dates: start: 20140313
  22. PERJETA [Concomitant]
     Active Substance: PERTUZUMAB
     Dosage: 420 MG
     Route: 051
     Dates: start: 20150519, end: 20150630
  23. AVASTIN [Concomitant]
     Active Substance: BEVACIZUMAB
     Dosage: 600 MG
     Route: 051
     Dates: start: 20160519, end: 20160630
  24. METHADONE [Suspect]
     Active Substance: METHADONE HYDROCHLORIDE
     Dosage: 15 MG (45 MG DAILY DOSE)
     Route: 048
     Dates: start: 20150701, end: 20150714
  25. METHADONE [Suspect]
     Active Substance: METHADONE HYDROCHLORIDE
     Dosage: 40 MG (120 MG DAILY DOSE)
     Route: 048
     Dates: start: 20161011, end: 20161024
  26. LOXONIN [Concomitant]
     Active Substance: LOXOPROFEN SODIUM
     Indication: ANALGESIC THERAPY
     Dosage: 180 MG
     Route: 048
     Dates: start: 20160913

REACTIONS (3)
  - Somnolence [Recovering/Resolving]
  - Breast cancer [Fatal]
  - Constipation [Not Recovered/Not Resolved]

NARRATIVE: CASE EVENT DATE: 20150522
